FAERS Safety Report 4658470-X (Version None)
Quarter: 2005Q2

REPORT INFORMATION
  Report Type: 
  Country: None (occurrence: None)
  Receive Date: 20050511
  Receipt Date: 20050311
  Transmission Date: 20051028
  Serious: Yes (Other)
  Sender: FDA-Public Use
  Company Number: SE-GLAXOSMITHKLINE-B0375449A

PATIENT
  Age: 63 Year
  Sex: Female
  Weight: 78 kg

DRUGS (9)
  1. ZYBAN [Suspect]
     Indication: SMOKING CESSATION THERAPY
     Dosage: 150MG TWICE PER DAY
     Route: 065
     Dates: start: 20020319
  2. WARAN [Concomitant]
  3. SPIRIVA [Concomitant]
  4. SIMVASTATIN [Concomitant]
  5. KALCIPOS-D [Concomitant]
  6. ZOMIG [Concomitant]
  7. OXIS [Concomitant]
  8. PULMICORT [Concomitant]
  9. FOSAMAX [Concomitant]

REACTIONS (2)
  - DRUG DEPENDENCE [None]
  - NO ADVERSE EFFECT [None]
